FAERS Safety Report 23464698 (Version 1)
Quarter: 2024Q1

REPORT INFORMATION
  Report Type: Spontaneous
  Country: NL (occurrence: NL)
  Receive Date: 20240201
  Receipt Date: 20240201
  Transmission Date: 20240410
  Serious: Yes (Other)
  Sender: FDA-Public Use
  Company Number: None

PATIENT
  Age: 75 Year
  Sex: Male
  Weight: 84 kg

DRUGS (2)
  1. IRBESARTAN [Suspect]
     Active Substance: IRBESARTAN
     Indication: Hypertension
     Dosage: 150 MG ONCE PER DAY
     Dates: start: 20160101
  2. NAPROXEN [Suspect]
     Active Substance: NAPROXEN
     Indication: Myalgia
     Dosage: 250 MG (MILLIGRAM),
     Dates: start: 20240118, end: 20240119

REACTIONS (2)
  - Haematochezia [Unknown]
  - Facial paralysis [Unknown]
